FAERS Safety Report 13668178 (Version 4)
Quarter: 2018Q2

REPORT INFORMATION
  Report Type: Spontaneous
  Country: US (occurrence: US)
  Receive Date: 20170620
  Receipt Date: 20180419
  Transmission Date: 20180711
  Serious: No
  Sender: FDA-Public Use
  Company Number: US-PFIZER INC-2017267319

PATIENT
  Age: 55 Year
  Sex: Female
  Weight: 70 kg

DRUGS (3)
  1. IBRANCE [Suspect]
     Active Substance: PALBOCICLIB
     Indication: BREAST CANCER METASTATIC
     Dosage: 125 MG, CYCLIC (D1-21 Q 28 DAYS)
     Route: 048
     Dates: start: 20170602
  2. IBRANCE [Suspect]
     Active Substance: PALBOCICLIB
     Dosage: 125 MG, UNK
     Route: 048
     Dates: start: 2018
  3. IBRANCE [Suspect]
     Active Substance: PALBOCICLIB
     Dosage: 125 MG, CYCLIC (DAYS 1-21 Q28 DAYS)
     Route: 048
     Dates: start: 20170602, end: 201802

REACTIONS (3)
  - Myalgia [Unknown]
  - Fatigue [Unknown]
  - White blood cell count decreased [Unknown]

NARRATIVE: CASE EVENT DATE: 2017
